FAERS Safety Report 16124383 (Version 4)
Quarter: 2019Q3

REPORT INFORMATION
  Report Type: Spontaneous
  Country: PL (occurrence: PL)
  Receive Date: 20190327
  Receipt Date: 20190708
  Transmission Date: 20191004
  Serious: Yes (Hospitalization, Other)
  Sender: FDA-Public Use
  Company Number: PL-SA-2019SA078456

PATIENT
  Age: 65 Year
  Sex: Female

DRUGS (19)
  1. OLANZAPINE. [Suspect]
     Active Substance: OLANZAPINE
     Indication: ANXIETY
     Dosage: UNK, UNK
     Route: 065
  2. VENLAFAXINE HYDROCHLORIDE. [Suspect]
     Active Substance: VENLAFAXINE HYDROCHLORIDE
     Dosage: UP TO 300 MG/DAY
     Route: 065
  3. ZOLPIDEM TARTRATE. [Suspect]
     Active Substance: ZOLPIDEM TARTRATE
     Indication: SLEEP DISORDER
     Dosage: UNK
     Route: 065
  4. NEBIVOLOL. [Suspect]
     Active Substance: NEBIVOLOL
     Indication: SOMATIC SYMPTOM DISORDER
     Route: 065
  5. LAMOTRIGINE. [Suspect]
     Active Substance: LAMOTRIGINE
     Indication: PRODUCT USED FOR UNKNOWN INDICATION
     Dosage: GRADUALLY INCREASED DOSES UP TO 200 MG/DAY
     Route: 065
  6. FLUTICASONE. [Suspect]
     Active Substance: FLUTICASONE
     Indication: SOMATIC SYMPTOM DISORDER
     Dosage: UNK
     Route: 065
  7. HYDROCHLOROTHIAZIDE. [Suspect]
     Active Substance: HYDROCHLOROTHIAZIDE
     Indication: SOMATIC SYMPTOM DISORDER
     Dosage: UNK
     Route: 065
  8. CLONAZEPAM. [Suspect]
     Active Substance: CLONAZEPAM
     Indication: ANXIETY
     Route: 065
  9. SALMETEROL [Suspect]
     Active Substance: SALMETEROL
     Indication: SOMATIC SYMPTOM DISORDER
     Dosage: UNK
     Route: 065
  10. ESOMEPRAZOLE SODIUM. [Suspect]
     Active Substance: ESOMEPRAZOLE SODIUM
     Route: 065
  11. VALSARTAN. [Suspect]
     Active Substance: VALSARTAN
     Indication: SOMATIC SYMPTOM DISORDER
     Dosage: UNK
     Route: 065
  12. MIDAZOLAM [Suspect]
     Active Substance: MIDAZOLAM HYDROCHLORIDE
     Indication: SLEEP DISORDER
     Dosage: UNK
     Route: 065
  13. PAROXETINE HYDROCHLORIDE. [Suspect]
     Active Substance: PAROXETINE HYDROCHLORIDE
     Dosage: UP TO 40 MG/DAY
     Route: 065
  14. ALPRAZOLAM. [Suspect]
     Active Substance: ALPRAZOLAM
     Indication: ANXIETY
     Dosage: UNK UNK, UNK
     Route: 065
  15. MONTELUKAST [Suspect]
     Active Substance: MONTELUKAST SODIUM
     Dosage: UNK
     Route: 065
  16. CLOBETASOL [Suspect]
     Active Substance: CLOBETASOL
     Indication: SOMATIC SYMPTOM DISORDER
     Route: 061
  17. QUETIAPINE FUMARATE. [Suspect]
     Active Substance: QUETIAPINE FUMARATE
     Dosage: UP TO 200MG/DAY
     Route: 065
  18. ESOMEPRAZOLE MAGNESIUM DIHYDRATE [Suspect]
     Active Substance: ESOMEPRAZOLE MAGNESIUM
     Indication: SOMATIC SYMPTOM DISORDER
     Dosage: UNK
     Route: 065
  19. BUPROPION. [Concomitant]
     Active Substance: BUPROPION
     Dosage: UP TO 300MG/DAY
     Route: 065

REACTIONS (6)
  - Product use in unapproved indication [Unknown]
  - Hepatic enzyme increased [Recovered/Resolved]
  - Off label use [Unknown]
  - Drug-induced liver injury [Recovered/Resolved]
  - Hepatic steatosis [Recovered/Resolved]
  - Therapeutic product effect incomplete [Unknown]
